FAERS Safety Report 23737024 (Version 2)
Quarter: 2024Q2

REPORT INFORMATION
  Report Type: Report from Study
  Country: ES (occurrence: ES)
  Receive Date: 20240412
  Receipt Date: 20240503
  Transmission Date: 20240716
  Serious: Yes (Other)
  Sender: FDA-Public Use
  Company Number: ES-JNJFOC-20240412290

PATIENT

DRUGS (1)
  1. PONESIMOD [Suspect]
     Active Substance: PONESIMOD
     Indication: Multiple sclerosis relapse
     Route: 048

REACTIONS (5)
  - Alanine aminotransferase increased [Unknown]
  - Infection [Unknown]
  - Hypertension [Unknown]
  - Skin lesion [Unknown]
  - Adverse event [Unknown]
